FAERS Safety Report 5557610-8 (Version None)
Quarter: 2007Q4

REPORT INFORMATION
  Report Type: 
  Country: None (occurrence: None)
  Receive Date: 20071214
  Receipt Date: 20071206
  Transmission Date: 20080405
  Serious: Yes (Other)
  Sender: FDA-Public Use
  Company Number: B0469388A

PATIENT
  Age: 85 Year
  Sex: Female
  Weight: 50 kg

DRUGS (4)
  1. ARIXTRA [Suspect]
     Indication: BEDRIDDEN
     Dosage: 2.5MG PER DAY
     Route: 058
     Dates: start: 20061210, end: 20061215
  2. LASIX [Concomitant]
  3. HEMIGOXINE [Concomitant]
  4. MODOPAR [Concomitant]
     Indication: PARKINSON'S DISEASE
     Dosage: 125MG THREE TIMES PER DAY
     Route: 048

REACTIONS (3)
  - HAEMORRHAGE SUBCUTANEOUS [None]
  - MUSCLE HAEMORRHAGE [None]
  - SKIN ULCER [None]
